FAERS Safety Report 4305215-9 (Version None)
Quarter: 2004Q1

REPORT INFORMATION
  Report Type: 
  Country: None (occurrence: None)
  Receive Date: 20040226
  Receipt Date: 20020516
  Transmission Date: 20041129
  Serious: Yes (Hospitalization)
  Sender: FDA-Public Use
  Company Number: WAES 0205USA02120

PATIENT
  Age: 64 Year
  Sex: Male
  Weight: 85 kg

DRUGS (3)
  1. [THERAPY UNSPECIFIED] [Concomitant]
  2. VIOXX [Suspect]
     Indication: SPONDYLITIS
     Route: 048
     Dates: end: 20010806
  3. VIOXX [Suspect]
     Indication: NECK PAIN
     Route: 048
     Dates: end: 20010806

REACTIONS (7)
  - ARTERIAL DISORDER [None]
  - CARDIAC DISORDER [None]
  - ERECTILE DYSFUNCTION [None]
  - HYPERSENSITIVITY [None]
  - INJURY [None]
  - MUSCLE TIGHTNESS [None]
  - MYOCARDIAL INFARCTION [None]
